FAERS Safety Report 17458232 (Version 1)
Quarter: 2020Q1

REPORT INFORMATION
  Report Type: Spontaneous
  Country: US (occurrence: US)
  Receive Date: 20200225
  Receipt Date: 20200225
  Transmission Date: 20200409
  Serious: No
  Sender: FDA-Public Use
  Company Number: US-BRISTOL-MYERS SQUIBB COMPANY-BMS-2019-126427

PATIENT
  Age: 34 Year
  Sex: Female
  Weight: 64.6 kg

DRUGS (2)
  1. KENALOG [Suspect]
     Active Substance: TRIAMCINOLONE ACETONIDE
     Indication: PSORIASIS
     Dosage: UNK MILLIGRAM ONCE
     Route: 026
     Dates: start: 2016, end: 2016
  2. KENALOG [Suspect]
     Active Substance: TRIAMCINOLONE ACETONIDE
     Indication: PSORIATIC ARTHROPATHY
     Route: 065

REACTIONS (1)
  - Drug ineffective [Unknown]
